FAERS Safety Report 4504184-6 (Version None)
Quarter: 2004Q4

REPORT INFORMATION
  Report Type: 
  Country: None (occurrence: None)
  Receive Date: 20041116
  Receipt Date: 20041116
  Transmission Date: 20050328
  Serious: Yes (Hospitalization)
  Sender: FDA-Public Use
  Company Number: None

PATIENT
  Age: 81 Year
  Sex: Male
  Weight: 85.7298 kg

DRUGS (18)
  1. FUROSEMIDE [Suspect]
     Indication: CORONARY ARTERY DISEASE
     Dosage: 20 MG DAILY (40 BID)
     Dates: start: 20040812, end: 20040902
  2. FUROSEMIDE [Suspect]
     Indication: EJECTION FRACTION DECREASED
     Dosage: 20 MG DAILY (40 BID)
     Dates: start: 20040812, end: 20040902
  3. FUROSEMIDE [Suspect]
     Indication: HYPERTENSION
     Dosage: 20 MG DAILY (40 BID)
     Dates: start: 20040812, end: 20040902
  4. ACETAMINOPHEN [Concomitant]
  5. CARVEDILOL [Concomitant]
  6. ISOSORBIDE MONONITRATE [Concomitant]
  7. AMIODARONE HCL (GENEVA) [Concomitant]
  8. SIMVASTATIN [Concomitant]
  9. FUROSEMIDE [Concomitant]
  10. LISINOPRIL [Concomitant]
  11. DOCUSATE [Concomitant]
  12. RANITIDINE [Concomitant]
  13. SULTINDAC [Concomitant]
  14. FLUNISOLIDE NASAL INHL SPRAY [Concomitant]
  15. ALBUTEROL 90/IPRATROP IHN [Concomitant]
  16. DM 10/GUAIFENESN [Concomitant]
  17. MAGNESIUM OXIDE [Concomitant]
  18. MULTIVITAMINE/MINER [Concomitant]

REACTIONS (1)
  - BLOOD SODIUM DECREASED [None]
